FAERS Safety Report 22169315 (Version 1)
Quarter: 2023Q2

REPORT INFORMATION
  Report Type: Spontaneous
  Country: US (occurrence: US)
  Receive Date: 20230404
  Receipt Date: 20230404
  Transmission Date: 20230722
  Serious: No
  Sender: FDA-Public Use
  Company Number: US-SANOFI-01553420

PATIENT
  Sex: Female
  Weight: 16 kg

DRUGS (1)
  1. XYZAL [Suspect]
     Active Substance: LEVOCETIRIZINE DIHYDROCHLORIDE
     Dosage: 5 ML
     Route: 065

REACTIONS (2)
  - Ophthalmic migraine [Unknown]
  - Retinal migraine [Unknown]
